FAERS Safety Report 4303741-X (Version None)
Quarter: 2004Q1

REPORT INFORMATION
  Report Type: 
  Country: None (occurrence: None)
  Receive Date: 20040223
  Receipt Date: 20040216
  Transmission Date: 20041129
  Serious: Yes (Hospitalization)
  Sender: FDA-Public Use
  Company Number: DEU-2004-0000742

PATIENT
  Age: 93 Year
  Sex: Female
  Weight: 70 kg

DRUGS (6)
  1. OXYGESIC 20 MG(OXYCODONE HYDROCHLORIDE) CR [Suspect]
     Indication: PAIN
     Dosage: 20 MG, BID, ORAL
     Route: 048
     Dates: start: 20030901
  2. THEOPHYLLINE [Suspect]
     Indication: BRONCHITIS CHRONIC
     Dosage: 200 MG, BID, ORAL
     Route: 048
     Dates: start: 20030801, end: 20031001
  3. AMITRIPTYLINE HCL [Suspect]
     Indication: DEPRESSION
     Dosage: 25 MG, DAILY, ORAL
     Route: 048
     Dates: start: 20030801
  4. BISOPROLOL [Suspect]
     Indication: HYPERTENSION
     Dosage: 5 MG, DAILY, ORAL
     Route: 048
     Dates: start: 20030801
  5. HYDROCHLOROTHIAZIDE [Suspect]
     Indication: HYPERTENSION
     Dosage: 25 MG, DAILY, ORAL
     Route: 048
     Dates: start: 20030801
  6. LACTULOSE [Concomitant]

REACTIONS (4)
  - ABDOMINAL PAIN [None]
  - CONSTIPATION [None]
  - HYPOKALAEMIA [None]
  - INTESTINAL HYPOMOTILITY [None]
